FAERS Safety Report 8859943 (Version 1)
Quarter: 2012Q4

REPORT INFORMATION
  Report Type: Report from Study
  Country: DE (occurrence: DE)
  Receive Date: 20121025
  Receipt Date: 20121025
  Transmission Date: 20130627
  Serious: Yes (Hospitalization)
  Sender: FDA-Public Use
  Company Number: DE-ABBOTT-12P-062-0997311-00

PATIENT
  Age: 54 None
  Sex: Male

DRUGS (2)
  1. HUMIRA [Suspect]
     Indication: PSORIATIC ARTHROPATHY
     Route: 050
     Dates: start: 20070101
  2. IODIDE [Concomitant]
     Indication: THYROID DISORDER

REACTIONS (2)
  - Sleep apnoea syndrome [Recovering/Resolving]
  - Post procedural haemorrhage [Recovered/Resolved]
